FAERS Safety Report 10639150 (Version 1)
Quarter: 2014Q4

REPORT INFORMATION
  Report Type: Spontaneous
  Country: US (occurrence: US)
  Receive Date: 20141208
  Receipt Date: 20141208
  Transmission Date: 20150529
  Serious: No
  Sender: FDA-Public Use
  Company Number: US-BAUSCH-SYM-2014-17944

PATIENT
  Age: 81 Year
  Sex: Male
  Weight: 99.88 kg

DRUGS (1)
  1. CARAC [Suspect]
     Active Substance: FLUOROURACIL
     Indication: SKIN CANCER
     Route: 061
     Dates: start: 20140207

REACTIONS (1)
  - Application site pain [Unknown]

NARRATIVE: CASE EVENT DATE: 20140119
